FAERS Safety Report 7277320-9 (Version None)
Quarter: 2011Q1

REPORT INFORMATION
  Report Type: 
  Country: None (occurrence: None)
  Receive Date: 20110203
  Receipt Date: 20110203
  Transmission Date: 20110831
  Serious: Yes (Hospitalization)
  Sender: FDA-Public Use
  Company Number: None

PATIENT
  Age: 62 Year
  Sex: Male
  Weight: 78.4723 kg

DRUGS (5)
  1. KETAMINE HCL [Suspect]
     Indication: DEPRESSION
     Dosage: 0.5 MG KG/IV
     Route: 042
  2. ADVAIR HFA [Suspect]
  3. PRILOSEC [Concomitant]
  4. ZOCOR [Concomitant]
  5. MIDAZOLAM HCL [Suspect]
     Dosage: 0.045 MG KG; IV
     Route: 042

REACTIONS (4)
  - SINUS ARREST [None]
  - SYNCOPE [None]
  - HYPOTENSION [None]
  - BRADYCARDIA [None]
